FAERS Safety Report 6299557-8 (Version None)
Quarter: 2009Q3

REPORT INFORMATION
  Report Type: 
  Country: None (occurrence: None)
  Receive Date: 20090804
  Receipt Date: 20090804
  Transmission Date: 20100115
  Serious: Yes (Life-Threatening, Disabling)
  Sender: FDA-Public Use
  Company Number: None

PATIENT
  Sex: Female
  Weight: 86.1 kg

DRUGS (2)
  1. DARVOCET-N 100 [Suspect]
     Indication: OSTEOARTHRITIS
     Dosage: PROPOXYPHENE NAPSYLATE 100 MG Q4-6H PRN PO 1 YEAR?
     Route: 048
  2. DARVOCET-N 100 [Suspect]
     Dosage: ACETAMINOPHEN 325 MG Q4-6H PRN PO
     Route: 048

REACTIONS (1)
  - SOMNOLENCE [None]
